FAERS Safety Report 5760266-2 (Version None)
Quarter: 2008Q2

REPORT INFORMATION
  Report Type: 
  Country: None (occurrence: None)
  Receive Date: 20080605
  Receipt Date: 20080526
  Transmission Date: 20081010
  Serious: Yes (Hospitalization, Other)
  Sender: FDA-Public Use
  Company Number: FR-ABBOTT-07P-056-0422910-00

PATIENT
  Sex: Male

DRUGS (1)
  1. VERCYTE [Suspect]
     Indication: ESSENTIAL THROMBOCYTHAEMIA
     Route: 048
     Dates: start: 20070721, end: 20070807

REACTIONS (4)
  - BONE MARROW FAILURE [None]
  - LEUKOPENIA [None]
  - SEPSIS [None]
  - THROMBOCYTOPENIA [None]
